FAERS Safety Report 9776149 (Version 1)
Quarter: 2013Q4

REPORT INFORMATION
  Report Type: Spontaneous
  Country: GB (occurrence: None)
  Receive Date: 20131218
  Receipt Date: 20131218
  Transmission Date: 20140711
  Serious: Yes (Other)
  Sender: FDA-Public Use
  Company Number: AUR-APL-2013-10335

PATIENT
  Age: 61 Year
  Sex: Female
  Weight: 44.45 kg

DRUGS (7)
  1. AMOXICILLIN [Suspect]
     Indication: LOWER RESPIRATORY TRACT INFECTION
     Dosage: 3 DOSAGE FORMS ( 1 DOSAGE FORMS, 3 IN 1 D), ORAL
     Route: 048
     Dates: start: 20131004, end: 20131005
  2. AMLODIPINE (AMLODIPINE) [Concomitant]
  3. PERINDOPRIL ERBUMIN (PERINDOPRIL ERBUMINE) [Concomitant]
  4. PHYLLOCNTIN CONTINUS (AMINIOPHYLLINE0 [Concomitant]
  5. SALBUTAMOL (SALBUTAMOL) [Concomitant]
  6. SERETIDE  (SERETIDE) [Concomitant]
  7. TIOTROPIUM BROMIDE (TIOTROPIUM BROMIDE) [Concomitant]

REACTIONS (9)
  - Burning sensation [None]
  - Pruritus [None]
  - Dyspnoea [None]
  - Lip swelling [None]
  - Swelling face [None]
  - Urticaria [None]
  - Faecal incontinence [None]
  - Loss of consciousness [None]
  - Memory impairment [None]
